FAERS Safety Report 25613213 (Version 3)
Quarter: 2025Q4

REPORT INFORMATION
  Report Type: Report from Study
  Country: US (occurrence: US)
  Receive Date: 20250728
  Receipt Date: 20251201
  Transmission Date: 20260118
  Serious: Yes (Hospitalization, Other)
  Sender: BAYER HEALTHCARE PHARMACEUTICALS INC.
  Company Number: US-BAYER-2025A079385

PATIENT
  Age: 55 Year
  Sex: Female

DRUGS (8)
  1. ADEMPAS [Suspect]
     Active Substance: RIOCIGUAT
     Indication: Pulmonary arterial hypertension
     Dosage: UNK
  2. ADEMPAS [Suspect]
     Active Substance: RIOCIGUAT
     Indication: Pulmonary hypertension
     Dosage: 2.5 MG, TID
     Route: 048
     Dates: start: 202410
  3. ORENITRAM [Suspect]
     Active Substance: TREPROSTINIL
     Dosage: 10 MG, TID
  4. ORENITRAM [Suspect]
     Active Substance: TREPROSTINIL
     Dosage: 8 MG, TID
  5. ORENITRAM [Suspect]
     Active Substance: TREPROSTINIL
     Dosage: 7.5 MG, TID
  6. OPSUMIT [Concomitant]
     Active Substance: MACITENTAN
  7. REMODULIN [Concomitant]
     Active Substance: TREPROSTINIL
  8. TREPROSTINIL [Concomitant]
     Active Substance: TREPROSTINIL

REACTIONS (6)
  - Hospitalisation [None]
  - Accident [None]
  - Diverticulitis [None]
  - Headache [None]
  - Headache [None]
  - Headache [None]

NARRATIVE: CASE EVENT DATE: 20250101
